FAERS Safety Report 4415268-5 (Version None)
Quarter: 2004Q3

REPORT INFORMATION
  Report Type: 
  Country: None (occurrence: None)
  Receive Date: 20040729
  Receipt Date: 20040720
  Transmission Date: 20050211
  Serious: Yes (Other)
  Sender: FDA-Public Use
  Company Number: 2004-07-1021

PATIENT
  Age: 57 Year
  Sex: Male

DRUGS (1)
  1. CELESTONE PHOSPHATE OPHTHALMIC SOLUTION [Suspect]
     Indication: PEMPHIGUS
     Dosage: EYE

REACTIONS (6)
  - CONJUNCTIVAL EROSION [None]
  - CONJUNCTIVAL HYPERAEMIA [None]
  - CORNEAL ULCER [None]
  - KERATITIS HERPETIC [None]
  - PEMPHIGUS [None]
  - SENSATION OF FOREIGN BODY [None]
